FAERS Safety Report 17349873 (Version 4)
Quarter: 2024Q2

REPORT INFORMATION
  Report Type: Spontaneous
  Country: IT (occurrence: IT)
  Receive Date: 20200130
  Receipt Date: 20240402
  Transmission Date: 20240716
  Serious: Yes (Death, Life-Threatening, Hospitalization, Other)
  Sender: FDA-Public Use
  Company Number: IT-MLMSERVICE-20200115-2123286-1

PATIENT
  Age: 40 Year
  Sex: Male

DRUGS (36)
  1. CLOZAPINE [Interacting]
     Active Substance: CLOZAPINE
     Indication: Agitation
     Dosage: DOSE WITHIN RECOMMENDED RANGE
     Route: 065
  2. CLOZAPINE [Interacting]
     Active Substance: CLOZAPINE
     Indication: Bipolar disorder
     Dosage: 400 MILLIGRAM, ONCE A DAY
     Route: 048
  3. CLOZAPINE [Interacting]
     Active Substance: CLOZAPINE
     Indication: Mania
     Dosage: 100 MILLIGRAM, DAILY,DAY 2
     Route: 048
  4. CLOZAPINE [Interacting]
     Active Substance: CLOZAPINE
     Indication: Psychomotor hyperactivity
     Dosage: 300 MILLIGRAM DAY 3 AND 5 : 100 MG 3 TIMES DAILY
     Route: 065
  5. CLOZAPINE [Interacting]
     Active Substance: CLOZAPINE
     Dosage: 400 MILLIGRAM, ONCE A DAY
     Route: 065
  6. DELORAZEPAM [Suspect]
     Active Substance: DELORAZEPAM
     Indication: Psychomotor hyperactivity
     Dosage: 5 MILLIGRAM DAY 1
     Route: 042
  7. DELORAZEPAM [Suspect]
     Active Substance: DELORAZEPAM
     Indication: Bipolar disorder
     Dosage: 5 MILLIGRAM, DAY 2 AT NIGHT
     Route: 030
  8. DELORAZEPAM [Suspect]
     Active Substance: DELORAZEPAM
     Indication: Agitation
     Dosage: 5 MILLIGRAM,DAY 3 TO DAY 5
     Route: 048
  9. VALPROIC ACID [Interacting]
     Active Substance: VALPROIC ACID
     Indication: Mania
     Dosage: UNK,DOSED WITHIN RECOMMENDED RANGE
     Route: 065
  10. VALPROIC ACID [Interacting]
     Active Substance: VALPROIC ACID
     Indication: Agitation
     Dosage: 500 MILLIGRAM, 3 TIMES A DAY
     Route: 048
  11. VALPROIC ACID [Interacting]
     Active Substance: VALPROIC ACID
     Indication: Psychomotor hyperactivity
     Dosage: 1500 MILLIGRAM, DAILY
     Route: 048
  12. VALPROIC ACID [Interacting]
     Active Substance: VALPROIC ACID
     Indication: Insomnia
     Dosage: 3 DOSAGE FORM, ONCE A DAY (DAY 3, 4 AND 5)
     Route: 048
  13. VALPROIC ACID [Interacting]
     Active Substance: VALPROIC ACID
     Dosage: 1 DOSAGE FORM, ONCE A DAY (DAY 1 AND 2)
     Route: 048
  14. VALPROIC ACID [Interacting]
     Active Substance: VALPROIC ACID
     Dosage: 500 MILLIGRAM DAY 1
     Route: 048
  15. VALPROIC ACID [Interacting]
     Active Substance: VALPROIC ACID
     Dosage: 500 MILLIGRAM DAY 2
     Route: 048
  16. HALOPERIDOL [Interacting]
     Active Substance: HALOPERIDOL
     Indication: Mania
     Dosage: UNK,DOSED WITHIN RECOMMENDED RANGE
     Route: 065
  17. HALOPERIDOL [Interacting]
     Active Substance: HALOPERIDOL
     Indication: Agitation
     Dosage: 15 MILLIGRAM,DAY 1
     Route: 042
  18. HALOPERIDOL [Interacting]
     Active Substance: HALOPERIDOL
     Indication: Bipolar disorder
     Dosage: 5 MILLIGRAM, DAY 4
     Route: 048
  19. HALOPERIDOL [Interacting]
     Active Substance: HALOPERIDOL
     Indication: Psychomotor hyperactivity
     Dosage: 10 MILLIGRAM, ONCE A DAY,DAY 5
     Route: 048
  20. PROMAZINE [Interacting]
     Active Substance: PROMAZINE
     Indication: Mania
     Dosage: UNK,DOSED WITHIN RECOMMENDED RANGE
     Route: 065
  21. PROMAZINE [Interacting]
     Active Substance: PROMAZINE
     Indication: Psychomotor hyperactivity
     Dosage: 60 MILLIGRAM AT NIGHT
     Route: 065
  22. PROMAZINE [Interacting]
     Active Substance: PROMAZINE
     Indication: Bipolar disorder
     Dosage: 60 MILLIGRAM,DAY 3 AND 4
     Route: 048
  23. PROMAZINE [Interacting]
     Active Substance: PROMAZINE
     Dosage: 120 MILLIGRAM, ONCE A DAY,DAY 5
     Route: 048
  24. FLUVOXAMINE [Suspect]
     Active Substance: FLUVOXAMINE
     Indication: Product used for unknown indication
     Dosage: 200 MILLIGRAM, DAILY
     Route: 048
  25. CHLORPHENIRAMINE MALEATE [Suspect]
     Active Substance: CHLORPHENIRAMINE MALEATE
     Indication: Psychomotor hyperactivity
     Dosage: 10 MILLIGRAM,DAY 1
     Route: 042
  26. CHLORPHENIRAMINE MALEATE [Suspect]
     Active Substance: CHLORPHENIRAMINE MALEATE
     Indication: Bipolar disorder
  27. CHLORPROMAZINE [Suspect]
     Active Substance: CHLORPROMAZINE
     Indication: Agitation
     Dosage: 50 MILLIGRAM (DAY 1)
     Route: 042
  28. CHLORPROMAZINE [Suspect]
     Active Substance: CHLORPROMAZINE
     Indication: Bipolar disorder
     Dosage: 50 MILLIGRAM (DAY 2)
     Route: 030
  29. CLOTHIAPINE [Suspect]
     Active Substance: CLOTHIAPINE
     Indication: Agitation
     Dosage: 40 MILLIGRAM,AT NIGHT, DAY 1
     Route: 030
  30. CLOTHIAPINE [Suspect]
     Active Substance: CLOTHIAPINE
     Indication: Insomnia
     Dosage: 12 MILLIGRAM, DAILY
     Route: 030
  31. CLOTHIAPINE [Suspect]
     Active Substance: CLOTHIAPINE
     Indication: Bipolar disorder
     Dosage: 40 MILLIGRAM, 3 TIMES A DAY,DAY 2
     Route: 030
  32. CLOTHIAPINE [Suspect]
     Active Substance: CLOTHIAPINE
     Indication: Psychomotor hyperactivity
     Dosage: 40 MILLIGRAM, 3 TIMES A DAY,DAY 23
     Route: 030
  33. CLOTHIAPINE [Suspect]
     Active Substance: CLOTHIAPINE
     Dosage: 120 MILLIGRAM, ONCE A DAY
     Route: 030
  34. MIDAZOLAM [Suspect]
     Active Substance: MIDAZOLAM
     Indication: Psychomotor hyperactivity
     Dosage: 15 MILLIGRAM (DAY 1)
     Route: 042
  35. MIDAZOLAM [Suspect]
     Active Substance: MIDAZOLAM
     Indication: Bipolar disorder
     Dosage: (DAY 1)5 MILLIGRAM
     Route: 042
  36. MIDAZOLAM [Suspect]
     Active Substance: MIDAZOLAM
     Dosage: 20 MILLIGRAM,DAY 1 AT 1.00 PM, 5 MG AT NIGHT
     Route: 042

REACTIONS (22)
  - Arteriosclerosis coronary artery [Fatal]
  - Cardiac arrest [Fatal]
  - Coronary artery stenosis [Fatal]
  - Cardiac hypertrophy [Fatal]
  - Cardiac valve sclerosis [Fatal]
  - Drug level increased [Fatal]
  - Myocardial ischaemia [Fatal]
  - Drug interaction [Fatal]
  - Toxicity to various agents [Fatal]
  - Sudden death [Fatal]
  - Extravasation blood [Unknown]
  - Splenic fibrosis [Unknown]
  - Brain oedema [Unknown]
  - Pulmonary congestion [Unknown]
  - Hepatic steatosis [Unknown]
  - Kidney congestion [Unknown]
  - Congestive hepatopathy [Unknown]
  - Pulmonary oedema [Unknown]
  - Skin laceration [Unknown]
  - Syncope [Unknown]
  - Head injury [Unknown]
  - Drug ineffective [Unknown]
